FAERS Safety Report 5907825-1 (Version None)
Quarter: 2008Q4

REPORT INFORMATION
  Report Type: 
  Country: None (occurrence: None)
  Receive Date: 20081003
  Receipt Date: 20080923
  Transmission Date: 20090506
  Serious: Yes (Other)
  Sender: FDA-Public Use
  Company Number: US-PFIZER INC-2008068773

PATIENT
  Sex: Female

DRUGS (8)
  1. ZITHROMAX [Interacting]
     Indication: BRONCHITIS
     Dates: start: 20080807
  2. ZITHROMAX [Interacting]
     Indication: RESPIRATORY TRACT INFECTION
  3. LYRICA [Interacting]
     Indication: FIBROMYALGIA
     Dates: start: 20070516
  4. AMITRIPTYLINE HCL [Interacting]
     Route: 048
     Dates: start: 20080813
  5. AZITHROMYCIN [Suspect]
  6. CYMBALTA [Concomitant]
  7. ULTRACET [Concomitant]
  8. TYLENOL (CAPLET) [Concomitant]

REACTIONS (4)
  - DRUG INTERACTION [None]
  - MOVEMENT DISORDER [None]
  - MUSCLE DISORDER [None]
  - NERVOUS SYSTEM DISORDER [None]
